FAERS Safety Report 8254214-3 (Version None)
Quarter: 2012Q2

REPORT INFORMATION
  Report Type: 
  Country: None (occurrence: None)
  Receive Date: 20120402
  Receipt Date: 20120321
  Transmission Date: 20120825
  Serious: No
  Sender: FDA-Public Use
  Company Number: US-AMGEN-USASP2012018304

PATIENT
  Age: 53 Year
  Sex: Female

DRUGS (1)
  1. ENBREL [Suspect]
     Indication: PSORIATIC ARTHROPATHY
     Dosage: 50 MG, QWK
     Dates: start: 20111205

REACTIONS (6)
  - VOMITING [None]
  - RHINORRHOEA [None]
  - NAUSEA [None]
  - SINUS CONGESTION [None]
  - INFLUENZA [None]
  - DIARRHOEA [None]
